FAERS Safety Report 9448818 (Version 1)
Quarter: 2013Q3

REPORT INFORMATION
  Report Type: Spontaneous
  Country: US (occurrence: US)
  Receive Date: 20130808
  Receipt Date: 20130808
  Transmission Date: 20140515
  Serious: No
  Sender: FDA-Public Use
  Company Number: US-009507513-1308USA001953

PATIENT
  Sex: Male

DRUGS (3)
  1. PROVENTIL [Suspect]
     Dosage: UNKNOWN
     Route: 055
  2. METOPROLOL [Concomitant]
  3. ZOCOR [Concomitant]

REACTIONS (2)
  - Drug dose omission [Unknown]
  - Product container issue [Unknown]
